FAERS Safety Report 21931428 (Version 1)
Quarter: 2023Q1

REPORT INFORMATION
  Report Type: Spontaneous
  Country: US (occurrence: US)
  Receive Date: 20230131
  Receipt Date: 20230131
  Transmission Date: 20230418
  Serious: Yes (Other)
  Sender: FDA-Public Use
  Company Number: US-ELI_LILLY_AND_COMPANY-US202301010422

PATIENT
  Age: 62 Year
  Sex: Female

DRUGS (6)
  1. HUMALOG [Suspect]
     Active Substance: INSULIN LISPRO
     Indication: Diabetes mellitus
     Dosage: 7-10 U, PRN (BEFORE MEALS)
     Route: 058
     Dates: start: 20211228
  2. HUMALOG [Suspect]
     Active Substance: INSULIN LISPRO
     Indication: Diabetes mellitus
     Dosage: 7-10 U, PRN (BEFORE MEALS)
     Route: 058
     Dates: start: 20211228
  3. HUMALOG [Suspect]
     Active Substance: INSULIN LISPRO
     Indication: Diabetes mellitus
     Dosage: 7-10 U, PRN (BEFORE MEALS)
     Route: 058
     Dates: start: 20211228
  4. HUMALOG [Suspect]
     Active Substance: INSULIN LISPRO
     Dosage: 7-10 U, PRN (BEFORE MEALS)
     Route: 058
  5. HUMALOG [Suspect]
     Active Substance: INSULIN LISPRO
     Dosage: 7-10 U, PRN (BEFORE MEALS)
     Route: 058
  6. HUMALOG [Suspect]
     Active Substance: INSULIN LISPRO
     Dosage: 7-10 U, PRN (BEFORE MEALS)
     Route: 058

REACTIONS (4)
  - Aortic stenosis [Unknown]
  - Food poisoning [Unknown]
  - Fatigue [Unknown]
  - Product storage error [Unknown]

NARRATIVE: CASE EVENT DATE: 20221101
